FAERS Safety Report 5286104-2 (Version None)
Quarter: 2007Q2

REPORT INFORMATION
  Report Type: 
  Country: None (occurrence: None)
  Receive Date: 20070404
  Receipt Date: 20070322
  Transmission Date: 20071010
  Serious: Yes (Disabling)
  Sender: FDA-Public Use
  Company Number: PHBS2007DK05186

PATIENT
  Age: 76 Year
  Sex: Female

DRUGS (1)
  1. PAMIDRONATE DISODIUM [Suspect]
     Indication: MULTIPLE MYELOMA
     Dosage: EVERY 6 WKS/90 MG,
     Route: 042
     Dates: start: 20030601, end: 20050801

REACTIONS (3)
  - OSTEONECROSIS [None]
  - TOOTH EXTRACTION [None]
  - TOOTH INJURY [None]
